FAERS Safety Report 4331980-0 (Version None)
Quarter: 2004Q2

REPORT INFORMATION
  Report Type: 
  Country: None (occurrence: None)
  Receive Date: 20040405
  Receipt Date: 20030903
  Transmission Date: 20050107
  Serious: No
  Sender: FDA-Public Use
  Company Number: US-GLAXOSMITHKLINE-A0424510A

PATIENT
  Age: 42 Year
  Sex: Female

DRUGS (14)
  1. SEREVENT [Suspect]
     Indication: ASTHMA
     Dosage: 2PUFF PER DAY
     Route: 055
  2. AEROBID [Concomitant]
  3. ZANAFLEX [Concomitant]
  4. SINGULAIR [Concomitant]
  5. SERZONE [Concomitant]
  6. FLONASE [Concomitant]
  7. SYNTHROID [Concomitant]
  8. RANITIDINE [Concomitant]
  9. HYDROCODONE BITARTRATE AND ACETAMINOPHEN [Concomitant]
  10. DITROPAN XL [Concomitant]
  11. DIAZEPAM [Concomitant]
  12. CLARINEX [Concomitant]
  13. HALCION [Concomitant]
  14. B+O SUPPOSITORY [Concomitant]

REACTIONS (6)
  - ASTHMA [None]
  - FALL [None]
  - FOOT FRACTURE [None]
  - PAIN [None]
  - PYREXIA [None]
  - TIBIA FRACTURE [None]
